FAERS Safety Report 5362234-1 (Version None)
Quarter: 2007Q2

REPORT INFORMATION
  Report Type: 
  Country: None (occurrence: None)
  Receive Date: 20070619
  Receipt Date: 20070614
  Transmission Date: 20071010
  Serious: Yes (Death)
  Sender: FDA-Public Use
  Company Number: HQWYE620914JUN07

PATIENT
  Age: 23 Year
  Sex: Female

DRUGS (2)
  1. AMIODARONE HCL [Suspect]
     Indication: TACHYCARDIA
     Dosage: 300 MG ONCE
     Route: 040
     Dates: start: 20070531, end: 20070531
  2. AMIODARONE HCL [Suspect]
     Dosage: 450 MG (600 MG/24 HOURS)
     Route: 042
     Dates: start: 20070531, end: 20070601

REACTIONS (2)
  - CARDIOPULMONARY FAILURE [None]
  - PYELONEPHRITIS ACUTE [None]
